FAERS Safety Report 8481975-0 (Version None)
Quarter: 2012Q3

REPORT INFORMATION
  Report Type: 
  Country: None (occurrence: None)
  Receive Date: 20120702
  Receipt Date: 20120620
  Transmission Date: 20120928
  Serious: No
  Sender: FDA-Public Use
  Company Number: US-ASTRAZENECA-2011SE34259

PATIENT
  Age: 56 Year
  Sex: Female

DRUGS (3)
  1. SYMBICORT [Suspect]
     Route: 055
  2. SPIRIVA [Suspect]
     Route: 065
  3. ADVAIR DISKUS 100/50 [Suspect]
     Route: 065

REACTIONS (5)
  - URTICARIA [None]
  - DRUG DOSE OMISSION [None]
  - SINUSITIS [None]
  - BRONCHOPNEUMONIA [None]
  - MALAISE [None]
